FAERS Safety Report 8928356 (Version 1)
Quarter: 2012Q4

REPORT INFORMATION
  Report Type: Spontaneous
  Country: US (occurrence: None)
  Receive Date: 20121126
  Receipt Date: 20121126
  Transmission Date: 20130627
  Serious: Yes (Other)
  Sender: FDA-Public Use
  Company Number: None

PATIENT
  Age: 33 Year
  Sex: Female
  Weight: 49.44 kg

DRUGS (1)
  1. MIRENA IUD NOT SURE OF HORMONE LEVEL MIRENA [Suspect]
     Indication: BIRTH CONTROL
     Dates: start: 20110527, end: 20110602

REACTIONS (5)
  - Abdominal pain [None]
  - Procedural pain [None]
  - Device dislocation [None]
  - Impaired work ability [None]
  - Activities of daily living impaired [None]
